FAERS Safety Report 8852307 (Version 1)
Quarter: 2012Q4

REPORT INFORMATION
  Report Type: Spontaneous
  Country: TW (occurrence: None)
  Receive Date: 20121017
  Receipt Date: 20121017
  Transmission Date: 20130627
  Serious: Yes (Hospitalization)
  Sender: FDA-Public Use
  Company Number: DSA_60084_2012

PATIENT
  Age: 53 Year
  Sex: Male

DRUGS (3)
  1. METRONIDAZOLE (METRONIDAZOLE) [Suspect]
     Indication: BRAIN ABSCESS
     Dosage: 7 weeks 6 days until not continuing, 4 weeks 5 days until not continuing
  2. CEFTRIAXONE [Concomitant]
  3. VANCOMYCIN [Concomitant]

REACTIONS (15)
  - Brain abscess [None]
  - Disease progression [None]
  - Altered state of consciousness [None]
  - Hemiparesis [None]
  - Peptostreptococcus test positive [None]
  - Bone marrow failure [None]
  - Dizziness [None]
  - Gaze palsy [None]
  - Nystagmus [None]
  - Dysarthria [None]
  - Hypoaesthesia [None]
  - Neuropathy peripheral [None]
  - Cognitive disorder [None]
  - Ataxia [None]
  - Nervous system disorder [None]
